FAERS Safety Report 12677848 (Version 2)
Quarter: 2016Q4

REPORT INFORMATION
  Report Type: Spontaneous
  Country: PL (occurrence: PL)
  Receive Date: 20160823
  Receipt Date: 20161004
  Transmission Date: 20170207
  Serious: Yes (Other)
  Sender: FDA-Public Use
  Company Number: PL-TEVA-685550ISR

PATIENT
  Age: 74 Year
  Sex: Female
  Weight: 63 kg

DRUGS (3)
  1. OXALIPLATIN. [Suspect]
     Active Substance: OXALIPLATIN
     Indication: COLON CANCER
     Route: 042
     Dates: start: 20160112, end: 20160329
  2. FLUOROURACIL. [Suspect]
     Active Substance: FLUOROURACIL
     Indication: COLON CANCER
     Route: 042
     Dates: start: 20160112, end: 20160331
  3. CALCII FOLINAS [Suspect]
     Active Substance: LEUCOVORIN
     Indication: COLON CANCER
     Route: 042
     Dates: start: 20160112, end: 20160330

REACTIONS (1)
  - Neutropenia [Unknown]

NARRATIVE: CASE EVENT DATE: 20160412
